FAERS Safety Report 15162649 (Version 1)
Quarter: 2018Q3

REPORT INFORMATION
  Report Type: Report from Study
  Country: US (occurrence: US)
  Receive Date: 20180718
  Receipt Date: 20180718
  Transmission Date: 20181010
  Serious: No
  Sender: FDA-Public Use
  Company Number: US-AMGEN-USASP2014019671

PATIENT
  Age: 26 Year
  Sex: Female
  Weight: 60.77 kg

DRUGS (1)
  1. ENBREL [Suspect]
     Active Substance: ETANERCEPT
     Indication: PSORIASIS
     Dosage: 50 MG, 2 TIMES/WK
     Route: 058
     Dates: start: 201402

REACTIONS (4)
  - Rash [Unknown]
  - Swelling [Unknown]
  - Injection site pain [Unknown]
  - Erythema [Unknown]

NARRATIVE: CASE EVENT DATE: 20140311
